FAERS Safety Report 4653822-6 (Version None)
Quarter: 2005Q2

REPORT INFORMATION
  Report Type: 
  Country: None (occurrence: None)
  Receive Date: 20050404
  Receipt Date: 20050118
  Transmission Date: 20051028
  Serious: No
  Sender: FDA-Public Use
  Company Number: USA050188697

PATIENT
  Sex: Female

DRUGS (6)
  1. CYMBALTA [Suspect]
     Indication: DEPRESSION
     Dosage: 60 MG/1 DAY
     Dates: start: 20050101
  2. BLOOD PRESSURE MEDICINE [Concomitant]
  3. VIT C TAB [Concomitant]
  4. VITAMIN B COMPLEX CAP [Concomitant]
  5. VITAMIN E [Concomitant]
  6. LEXAPRO [Concomitant]

REACTIONS (6)
  - DECREASED APPETITE [None]
  - DIZZINESS [None]
  - HYPERHIDROSIS [None]
  - HYPERTONIA [None]
  - MIDDLE INSOMNIA [None]
  - SOMNOLENCE [None]
